FAERS Safety Report 21977331 (Version 2)
Quarter: 2023Q1

REPORT INFORMATION
  Report Type: Report from Study
  Country: JP (occurrence: JP)
  Receive Date: 20230210
  Receipt Date: 20230321
  Transmission Date: 20230418
  Serious: Yes (Death, Other)
  Sender: FDA-Public Use
  Company Number: JP-ALNYLAM PHARMACEUTICALS, INC.-ALN-2022-001510

PATIENT

DRUGS (14)
  1. ONPATTRO [Suspect]
     Active Substance: PATISIRAN SODIUM
     Indication: Hereditary neuropathic amyloidosis
     Dosage: 16.98 MILLIGRAM, Q3W
     Route: 041
     Dates: start: 20210701, end: 20220217
  2. DEXAMETHASONE SODIUM PHOSPHATE [Concomitant]
     Active Substance: DEXAMETHASONE SODIUM PHOSPHATE
     Indication: Prophylaxis
     Dosage: 9.9 MILLIGRAM, SINGLE
     Route: 041
     Dates: start: 20210701, end: 20220217
  3. GASTER [Concomitant]
     Active Substance: FAMOTIDINE
     Indication: Prophylaxis
     Dosage: 20 MILLIGRAM, SINGLE
     Route: 041
     Dates: start: 20210701, end: 20220217
  4. POLARAMINE [Concomitant]
     Active Substance: DEXCHLORPHENIRAMINE MALEATE
     Indication: Prophylaxis
     Dosage: 5 MILLIGRAM, SINGLE
     Route: 041
     Dates: start: 20210701, end: 20220217
  5. CALONAL [Concomitant]
     Active Substance: ACETAMINOPHEN
     Indication: Prophylaxis
     Dosage: 500 MILLIGRAM, SINGLE
     Route: 048
     Dates: start: 20210701, end: 20220217
  6. VITAMINS [Concomitant]
     Active Substance: VITAMINS
     Indication: Vitamin supplementation
     Dosage: 1 GRAM, QD
     Route: 048
     Dates: start: 20210701, end: 20220218
  7. AZOSEMIDE [Concomitant]
     Active Substance: AZOSEMIDE
     Indication: Hereditary neuropathic amyloidosis
     Dosage: 30 MILLIGRAM, QD
     Route: 048
     Dates: end: 20220218
  8. VONOPRAZAN FUMARATE [Concomitant]
     Active Substance: VONOPRAZAN FUMARATE
     Indication: Hereditary neuropathic amyloidosis
     Dosage: 10 MILLIGRAM, QD
     Route: 048
     Dates: end: 20220218
  9. LEVOTHYROXINE [Concomitant]
     Active Substance: LEVOTHYROXINE
     Indication: Hypothyroidism
     Dosage: 0.1 MILLIGRAM, QD
     Route: 048
     Dates: end: 20220218
  10. AMARYL [Concomitant]
     Active Substance: GLIMEPIRIDE
     Indication: Diabetes mellitus
     Dosage: 0.5 MILLIGRAM, QD
     Route: 048
     Dates: end: 20220218
  11. DAPAGLIFLOZIN [Concomitant]
     Active Substance: DAPAGLIFLOZIN
     Indication: Diabetes mellitus
     Dosage: 5 MILLIGRAM, QD
     Route: 048
     Dates: end: 20220218
  12. NU-LOTAN [Concomitant]
     Active Substance: LOSARTAN POTASSIUM
     Indication: Hypertension
     Dosage: 25 MILLIGRAM, QD
     Route: 048
     Dates: end: 20220218
  13. SPIRONOLACTONE [Concomitant]
     Active Substance: SPIRONOLACTONE
     Indication: Hereditary neuropathic amyloidosis
     Dosage: 25 MILLIGRAM, QD
     Route: 048
     Dates: end: 20220218
  14. EDOXABAN TOSYLATE [Concomitant]
     Active Substance: EDOXABAN TOSYLATE
     Indication: Hereditary neuropathic amyloidosis
     Dosage: 30 MILLIGRAM, QD
     Route: 048
     Dates: end: 20220218

REACTIONS (2)
  - Sudden death [Fatal]
  - Disease progression [Fatal]

NARRATIVE: CASE EVENT DATE: 20220218
